FAERS Safety Report 9019475 (Version 1)
Quarter: 2013Q1

REPORT INFORMATION
  Report Type: Spontaneous
  Country: US (occurrence: US)
  Receive Date: 20130118
  Receipt Date: 20130118
  Transmission Date: 20140127
  Serious: No
  Sender: FDA-Public Use
  Company Number: US-009507513-1301USA008996

PATIENT
  Age: 14 Year
  Sex: Female

DRUGS (1)
  1. MIRALAX [Suspect]
     Indication: CONSTIPATION
     Dosage: UNK, UNKNOWN
     Route: 048
     Dates: start: 201211, end: 20121229

REACTIONS (2)
  - Vulvovaginal pruritus [Not Recovered/Not Resolved]
  - Incorrect drug administration duration [Unknown]
